FAERS Safety Report 23284381 (Version 2)
Quarter: 2024Q4

REPORT INFORMATION
  Report Type: Spontaneous
  Country: US (occurrence: US)
  Receive Date: 20231211
  Receipt Date: 20241213
  Transmission Date: 20250115
  Serious: No
  Sender: PFIZER
  Company Number: US-PFIZER INC-202300435274

PATIENT
  Age: 70 Year
  Sex: Male

DRUGS (1)
  1. XELJANZ XR [Suspect]
     Active Substance: TOFACITINIB CITRATE
     Indication: Rheumatoid arthritis
     Dosage: 11 MG, 1X/DAY
     Route: 048

REACTIONS (14)
  - Musculoskeletal stiffness [Unknown]
  - Peripheral swelling [Unknown]
  - Paraesthesia [Unknown]
  - Dry eye [Unknown]
  - Product dose omission issue [Unknown]
  - Pain in extremity [Unknown]
  - Peripheral swelling [Unknown]
  - Musculoskeletal disorder [Unknown]
  - Hypoaesthesia [Unknown]
  - Contusion [Unknown]
  - Herpes zoster [Unknown]
  - Back pain [Unknown]
  - Hyperaesthesia [Unknown]
  - Product prescribing error [Unknown]
